FAERS Safety Report 9245274 (Version 1)
Quarter: 2013Q2

REPORT INFORMATION
  Report Type: Report from Study
  Country: US (occurrence: US)
  Receive Date: 20130422
  Receipt Date: 20130422
  Transmission Date: 20140414
  Serious: Yes (Other)
  Sender: FDA-Public Use
  Company Number: US-SANOFI-AVENTIS-2013SA038055

PATIENT
  Sex: 0

DRUGS (8)
  1. DOCETAXEL [Suspect]
     Indication: PRODUCT USED FOR UNKNOWN INDICATION
     Route: 065
     Dates: start: 20090910, end: 20111229
  2. DOXORUBICIN [Suspect]
     Indication: PRODUCT USED FOR UNKNOWN INDICATION
     Route: 065
     Dates: start: 20090910, end: 20111229
  3. CYCLOPHOSPHAMIDE [Suspect]
     Indication: PRODUCT USED FOR UNKNOWN INDICATION
     Route: 065
     Dates: start: 20090910, end: 20111229
  4. TYLENOL [Concomitant]
  5. PROMETHAZINE [Concomitant]
  6. SYNTHROID [Concomitant]
  7. TAMOXIFEN [Concomitant]
  8. NASACORT AQ [Concomitant]

REACTIONS (1)
  - Metastasis [Unknown]
